FAERS Safety Report 8153047-6 (Version None)
Quarter: 2012Q1

REPORT INFORMATION
  Report Type: 
  Country: None (occurrence: None)
  Receive Date: 20120221
  Receipt Date: 20120216
  Transmission Date: 20120608
  Serious: Yes (Death, Hospitalization, Other)
  Sender: FDA-Public Use
  Company Number: JP-PFIZER INC-2011266207

PATIENT
  Age: 88 Year
  Sex: Female

DRUGS (13)
  1. LENDORMIN [Concomitant]
     Dosage: 0.25 MG, UNK
     Route: 048
     Dates: start: 20110528, end: 20110614
  2. ARGATROBAN [Suspect]
     Dosage: 5 MG/H X 4H (3 IN 1 WK)
     Route: 041
     Dates: start: 20110722, end: 20110725
  3. ARGATROBAN [Suspect]
     Dosage: 3.75 MG/H X 4H (3 IN 1 WK)
     Route: 041
     Dates: start: 20110704, end: 20110720
  4. ARGATROBAN [Concomitant]
     Dosage: 2.5 MG/H X 4H (3 IN 1 WEEK)
     Route: 041
     Dates: start: 20110728, end: 20110804
  5. ROCEPHIN [Concomitant]
     Indication: INFECTION
     Dosage: 1 G, UNK
     Route: 042
     Dates: start: 20110607, end: 20110618
  6. HEPARIN SODIUM [Concomitant]
     Dosage: UNK
     Route: 051
     Dates: start: 20110512
  7. LEVOTHYROXINE SODIUM [Concomitant]
     Dosage: 25 UG, UNK
     Route: 048
     Dates: start: 20110513, end: 20110809
  8. PROMACTA [Concomitant]
     Dosage: 1 G, UNK
     Route: 048
     Dates: start: 20110531, end: 20110809
  9. LIVACT [Concomitant]
     Dosage: 8.3 G, UNK
     Route: 048
     Dates: start: 20110725, end: 20110816
  10. GLUCONSAN K [Concomitant]
     Dosage: 3 G, UNK
     Route: 048
     Dates: start: 20110523, end: 20110805
  11. LOSARTAN POTASSIUM [Concomitant]
     Dosage: 25 MG, UNK
     Route: 048
     Dates: start: 20110512, end: 20110607
  12. LANSOPRAZOLE [Concomitant]
     Dosage: 15 MG, UNK
     Route: 048
     Dates: start: 20110512, end: 20110809
  13. ARGATROBAN [Suspect]
     Indication: ANTICOAGULANT THERAPY
     Dosage: 5 MG/H X 4H (3 IN 1 WEEK)
     Route: 041
     Dates: start: 20110603, end: 20110701

REACTIONS (5)
  - TONIC CONVULSION [None]
  - CEREBRAL INFARCTION [None]
  - HEPATIC CIRRHOSIS [None]
  - BLEEDING TIME PROLONGED [None]
  - RENAL FAILURE CHRONIC [None]
